FAERS Safety Report 5256371-X (Version None)
Quarter: 2007Q1

REPORT INFORMATION
  Report Type: 
  Country: None (occurrence: None)
  Receive Date: 20070306
  Receipt Date: 20070306
  Transmission Date: 20070707
  Serious: Yes (Hospitalization)
  Sender: FDA-Public Use
  Company Number: US-GLAXOSMITHKLINE-A0641801A

PATIENT
  Age: 78 Year

DRUGS (3)
  1. NICORETTE [Suspect]
     Indication: SMOKING CESSATION THERAPY
     Dosage: 4MG SEE DOSAGE TEXT
     Route: 002
     Dates: start: 20060101
  2. ASPIRIN [Concomitant]
     Dosage: 1TAB SEE DOSAGE TEXT
  3. LIPITOR [Concomitant]
     Dosage: 1TAB ALTERNATE DAYS

REACTIONS (9)
  - COLD SWEAT [None]
  - DIZZINESS [None]
  - DRUG ADMINISTRATION ERROR [None]
  - ELECTROCARDIOGRAM ABNORMAL [None]
  - HICCUPS [None]
  - INTENTIONAL DRUG MISUSE [None]
  - MYOCARDIAL INFARCTION [None]
  - NAUSEA [None]
  - SYNCOPE [None]
